FAERS Safety Report 4848345-5 (Version None)
Quarter: 2005Q4

REPORT INFORMATION
  Report Type: 
  Country: None (occurrence: None)
  Receive Date: 20051208
  Receipt Date: 20051129
  Transmission Date: 20060501
  Serious: Yes (Death, Hospitalization)
  Sender: FDA-Public Use
  Company Number: NO-MERCK-0512NOR00005

PATIENT
  Age: 73 Year
  Sex: Female

DRUGS (5)
  1. PRINIVIL [Suspect]
     Route: 048
  2. ALCLOFENAC [Suspect]
     Route: 048
  3. METFORMIN HYDROCHLORIDE [Suspect]
     Route: 065
  4. LATANOPROST [Concomitant]
     Route: 065
  5. GLIMEPIRIDE [Concomitant]
     Route: 065

REACTIONS (4)
  - DEATH [None]
  - DRUG INTERACTION [None]
  - METABOLIC ACIDOSIS [None]
  - RENAL FAILURE [None]
